FAERS Safety Report 18134083 (Version 1)
Quarter: 2020Q3

REPORT INFORMATION
  Report Type: Spontaneous
  Country: US (occurrence: US)
  Receive Date: 20200811
  Receipt Date: 20200811
  Transmission Date: 20201103
  Serious: No
  Sender: FDA-Public Use
  Company Number: US-BRAINTREE LABORATORIES-200176

PATIENT
  Age: 49 Year
  Sex: Female
  Weight: 53.52 kg

DRUGS (1)
  1. GOLYTELY [Suspect]
     Active Substance: POLYETHYLENE GLYCOL 3350\POTASSIUM CHLORIDE\SODIUM BICARBONATE\SODIUM CHLORIDE\SODIUM SULFATE ANHYDROUS
     Indication: COLONOSCOPY
     Dosage: ~2L
     Route: 048
     Dates: start: 20200531, end: 20200531

REACTIONS (1)
  - Vomiting [None]

NARRATIVE: CASE EVENT DATE: 20200531
